FAERS Safety Report 13818058 (Version 1)
Quarter: 2017Q3

REPORT INFORMATION
  Report Type: Spontaneous
  Country: US (occurrence: US)
  Receive Date: 20170731
  Receipt Date: 20170731
  Transmission Date: 20171127
  Serious: No
  Sender: FDA-Public Use
  Company Number: US-ROCHE-629175

PATIENT
  Age: 58 Year
  Sex: Female
  Weight: 67.3 kg

DRUGS (1)
  1. BONIVA [Suspect]
     Active Substance: IBANDRONATE SODIUM
     Indication: OSTEOPOROSIS
     Dosage: BATCH NUMBER: VARIOUS, DOSE: 3 MG/3 ML
     Route: 042
     Dates: start: 20090122, end: 20090422

REACTIONS (4)
  - Nausea [Recovering/Resolving]
  - Injection site extravasation [Unknown]
  - Injection site swelling [Recovering/Resolving]
  - Vomiting [Recovering/Resolving]

NARRATIVE: CASE EVENT DATE: 20090422
